FAERS Safety Report 26146731 (Version 1)
Quarter: 2025Q4

REPORT INFORMATION
  Report Type: Spontaneous
  Country: JP (occurrence: JP)
  Receive Date: 20251211
  Receipt Date: 20251211
  Transmission Date: 20260117
  Serious: Yes (Hospitalization, Other)
  Sender: BRISTOL-MYERS SQUIBB COMPANY
  Company Number: JP-BRISTOL-MYERS SQUIBB COMPANY-BMS-2021-035301

PATIENT
  Age: 63 Year
  Sex: Female

DRUGS (4)
  1. NIVOLUMAB [Suspect]
     Active Substance: NIVOLUMAB
     Indication: Malignant melanoma
     Dosage: UNK, ONE TIME DOSE
     Route: 041
     Dates: start: 20200703, end: 20200703
  2. NIVOLUMAB [Suspect]
     Active Substance: NIVOLUMAB
     Dosage: UNK, ONE TIME DOSE
     Route: 041
     Dates: start: 20200727, end: 20200727
  3. IPILIMUMAB [Suspect]
     Active Substance: IPILIMUMAB
     Indication: Malignant melanoma
     Dosage: UNK, ONE TIME DOSE
     Route: 041
     Dates: start: 20200703, end: 20200703
  4. IPILIMUMAB [Suspect]
     Active Substance: IPILIMUMAB
     Dosage: UNK, ONE TIME DOSE
     Route: 041
     Dates: start: 20200727, end: 20200727

REACTIONS (5)
  - Immune-mediated myositis [Recovered/Resolved]
  - Immune-mediated uveitis [Recovered/Resolved]
  - Immune-mediated myocarditis [Unknown]
  - Immune-mediated hepatic disorder [Unknown]
  - Immune-mediated dermatitis [Recovering/Resolving]

NARRATIVE: CASE EVENT DATE: 20200727
